FAERS Safety Report 8799637 (Version 3)
Quarter: 2013Q2

REPORT INFORMATION
  Report Type: Report from Study
  Country: CA (occurrence: CA)
  Receive Date: 20120919
  Receipt Date: 20130501
  Transmission Date: 20140414
  Serious: Yes (Death, Hospitalization, Disabling)
  Sender: FDA-Public Use
  Company Number: CA-TEVA-359450USA

PATIENT
  Age: 71 Year
  Sex: Male
  Weight: 79.4 kg

DRUGS (5)
  1. TREANDA [Suspect]
     Indication: DIFFUSE LARGE B-CELL LYMPHOMA
     Route: 042
     Dates: start: 20111229, end: 20120518
  2. RITUXIMAB [Suspect]
     Indication: DIFFUSE LARGE B-CELL LYMPHOMA
     Route: 042
     Dates: start: 20111229, end: 20120517
  3. ROSUVASTATIN [Concomitant]
     Indication: HYPERLIPIDAEMIA
     Dosage: 20 MILLIGRAM DAILY;
     Route: 048
     Dates: start: 2003
  4. DUTASTERIDE [Concomitant]
     Indication: PROSTATOMEGALY
     Dosage: .5 MILLIGRAM DAILY;
     Route: 048
     Dates: start: 2009
  5. SENOKOT [Concomitant]
     Indication: CONSTIPATION
     Dates: start: 20111104

REACTIONS (1)
  - Progressive multifocal leukoencephalopathy [Fatal]
